FAERS Safety Report 7571029-X (Version None)
Quarter: 2011Q2

REPORT INFORMATION
  Report Type: 
  Country: None (occurrence: None)
  Receive Date: 20110624
  Receipt Date: 20110610
  Transmission Date: 20111010
  Serious: Yes (Hospitalization, Other)
  Sender: FDA-Public Use
  Company Number: US-ROCHE-782765

PATIENT
  Sex: Female

DRUGS (7)
  1. CELEBREX [Concomitant]
  2. PEGASYS [Suspect]
     Indication: HEPATITIS C
     Dosage: COMPLETED 48 WEEKS
     Route: 065
     Dates: start: 20100705
  3. RIBAVIRIN [Suspect]
     Indication: HEPATITIS C
     Dosage: DIVIDED DOSE.
     Route: 065
     Dates: start: 20100705
  4. CELEBREX [Concomitant]
  5. PROVIGIL [Concomitant]
  6. MORPHINE SULFATE [Concomitant]
  7. TIZANIDINE HCL [Concomitant]

REACTIONS (5)
  - COLITIS [None]
  - PYREXIA [None]
  - FEEDING DISORDER [None]
  - DIARRHOEA [None]
  - CLOSTRIDIAL INFECTION [None]
